FAERS Safety Report 7206948-7 (Version None)
Quarter: 2011Q1

REPORT INFORMATION
  Report Type: 
  Country: None (occurrence: None)
  Receive Date: 20110103
  Receipt Date: 20101229
  Transmission Date: 20110831
  Serious: Yes (Death)
  Sender: FDA-Public Use
  Company Number: A0902022A

PATIENT
  Age: 80 Year
  Sex: Female

DRUGS (2)
  1. COREG CR [Suspect]
     Dosage: 6.25MG PER DAY
     Route: 048
  2. MULTIPLE MEDICATIONS [Concomitant]

REACTIONS (3)
  - CARDIAC DISORDER [None]
  - DEATH [None]
  - CARDIAC VALVE DISEASE [None]
